FAERS Safety Report 6163476-8 (Version None)
Quarter: 2009Q2

REPORT INFORMATION
  Report Type: 
  Country: None (occurrence: None)
  Receive Date: 20090422
  Receipt Date: 20090414
  Transmission Date: 20091009
  Serious: Yes (Other)
  Sender: FDA-Public Use
  Company Number: GB-JNJFOC-20081106224

PATIENT
  Sex: Male
  Weight: 60 kg

DRUGS (7)
  1. REMICADE [Suspect]
     Indication: CROHN'S DISEASE
     Route: 042
  2. PREDNISOLONE [Concomitant]
  3. PREDNISOLONE [Concomitant]
  4. GAVISCON [Concomitant]
  5. CALCICHEW [Concomitant]
  6. FERROUS SULFATE TAB [Concomitant]
  7. ACETAMINOPHEN W/ CODEINE [Concomitant]
     Dosage: 2 AS NEEDED

REACTIONS (1)
  - PULMONARY TUBERCULOSIS [None]
